FAERS Safety Report 6312627-0 (Version None)
Quarter: 2009Q3

REPORT INFORMATION
  Report Type: 
  Country: None (occurrence: None)
  Receive Date: 20090814
  Receipt Date: 20090807
  Transmission Date: 20100115
  Serious: Yes (Other)
  Sender: FDA-Public Use
  Company Number: SPV1-2009-01635

PATIENT

DRUGS (1)
  1. VYVANE (LISDEXAMFETAINE DIMEX=SYLATE) CAPSULE [Suspect]
     Indication: DRUG USE FOR UNKNOWN INDICATION
     Dosage: 60 MG, 1X/DAY: QD, ORAL
     Route: 048

REACTIONS (1)
  - ATRIAL FIBRILLATION [None]
